FAERS Safety Report 5504400-8 (Version None)
Quarter: 2007Q4

REPORT INFORMATION
  Report Type: 
  Country: None (occurrence: None)
  Receive Date: 20071101
  Receipt Date: 20071023
  Transmission Date: 20080405
  Serious: Yes (Hospitalization)
  Sender: FDA-Public Use
  Company Number: US-ELI_LILLY_AND_COMPANY-US200708004797

PATIENT
  Sex: Male

DRUGS (6)
  1. BYETTA [Suspect]
     Indication: TYPE 2 DIABETES MELLITUS
     Dosage: 5 UG, 2/D
     Route: 058
     Dates: start: 20050801
  2. BYETTA [Suspect]
     Dosage: 10 UG, 2/D
     Route: 058
     Dates: start: 20050901
  3. GLUCOPHAGE [Concomitant]
     Indication: DIABETES MELLITUS
     Dosage: 1000 MG, 2/D
     Route: 048
  4. GLUCOTROL XL [Concomitant]
     Indication: DIABETES MELLITUS
     Dosage: 10 MG, 2/D
     Route: 048
  5. AVANDIA [Concomitant]
     Indication: DIABETES MELLITUS
     Dosage: 4 MG, 2/D
     Route: 048
  6. ACCURETIC [Concomitant]
     Indication: BLOOD PRESSURE INCREASED
     Dosage: UNK, DAILY (1/D)
     Route: 048

REACTIONS (4)
  - ASTHENIA [None]
  - PARAESTHESIA [None]
  - SENSATION OF HEAVINESS [None]
  - TRANSIENT ISCHAEMIC ATTACK [None]
